FAERS Safety Report 15014974 (Version 1)
Quarter: 2018Q2

REPORT INFORMATION
  Report Type: Spontaneous
  Country: US (occurrence: US)
  Receive Date: 20180530
  Receipt Date: 20180530
  Transmission Date: 20180711
  Serious: Yes (Other)
  Sender: FDA-Public Use
  Company Number: None

PATIENT
  Age: 63 Year
  Sex: Female
  Weight: 101.25 kg

DRUGS (9)
  1. GLUCOSAMINE/CHONDROITIN [Concomitant]
  2. SYNTHROID [Concomitant]
     Active Substance: LEVOTHYROXINE SODIUM
  3. VITAMIN D [Concomitant]
     Active Substance: CHOLECALCIFEROL
  4. ADVIL [Concomitant]
     Active Substance: IBUPROFEN
  5. LOSARTAN. [Concomitant]
     Active Substance: LOSARTAN
  6. TYLENOL [Concomitant]
     Active Substance: ACETAMINOPHEN
  7. RING RELIEF [Suspect]
     Active Substance: HOMEOPATHICS
     Indication: TINNITUS
     Dosage: 1 TABLET(S) UP TO 6X PER DAY; SUBLINGUAL?
     Route: 060
  8. MULTIVITAMIN [Concomitant]
     Active Substance: VITAMINS
  9. VITAMIN B12 [Concomitant]
     Active Substance: CYANOCOBALAMIN

REACTIONS (1)
  - Vision blurred [None]

NARRATIVE: CASE EVENT DATE: 20180528
